FAERS Safety Report 10307795 (Version 2)
Quarter: 2014Q3

REPORT INFORMATION
  Report Type: Spontaneous
  Country: MA (occurrence: MA)
  Receive Date: 20140716
  Receipt Date: 20140716
  Transmission Date: 20150326
  Serious: Yes (Other)
  Sender: FDA-Public Use
  Company Number: MA-PFIZER INC-2014194056

PATIENT
  Age: 40 Year
  Sex: Male

DRUGS (1)
  1. SILDENAFIL CITRATE. [Suspect]
     Active Substance: SILDENAFIL CITRATE
     Dosage: ONE TABLET (100 MG) FOR TWO CONSECUTIVE DAYS

REACTIONS (2)
  - Retinal vein occlusion [Recovering/Resolving]
  - Retinal artery occlusion [Recovering/Resolving]
